FAERS Safety Report 7141928-1 (Version None)
Quarter: 2010Q4

REPORT INFORMATION
  Report Type: 
  Country: None (occurrence: None)
  Receive Date: 20101207
  Receipt Date: 20101130
  Transmission Date: 20110411
  Serious: Yes (Hospitalization)
  Sender: FDA-Public Use
  Company Number: US-PURDUE-USA-2010-0056335

PATIENT
  Sex: Male

DRUGS (3)
  1. OXYCONTIN [Suspect]
     Indication: PRODUCT USED FOR UNKNOWN INDICATION
     Dosage: 80 MG, TID
     Dates: start: 20100901
  2. ROXICODONE [Suspect]
     Indication: BREAKTHROUGH PAIN
     Dosage: 30 MG, PRN
  3. ROXICODONE [Suspect]
     Dosage: 15 MG, PRN

REACTIONS (4)
  - DIVERTICULITIS [None]
  - DRUG INEFFECTIVE [None]
  - MEDICATION RESIDUE [None]
  - PYREXIA [None]
